FAERS Safety Report 7478223-7 (Version None)
Quarter: 2011Q2

REPORT INFORMATION
  Report Type: 
  Country: None (occurrence: None)
  Receive Date: 20110513
  Receipt Date: 20110503
  Transmission Date: 20111010
  Serious: Yes (Other)
  Sender: FDA-Public Use
  Company Number: PHFR2011GB02930

PATIENT
  Sex: Male

DRUGS (3)
  1. CLOZARIL [Suspect]
     Dosage: 150 MG AM
     Route: 048
     Dates: start: 20110503
  2. CLOZARIL [Suspect]
     Indication: SCHIZOPHRENIA
     Dosage: 150 MG AM + 250 MG PM
     Route: 048
     Dates: start: 20070804
  3. CLOZARIL [Suspect]
     Dosage: 250 MG PM
     Route: 048
     Dates: start: 20110502

REACTIONS (1)
  - MEDICATION ERROR [None]
